FAERS Safety Report 9511079 (Version 1)
Quarter: 2013Q3

REPORT INFORMATION
  Report Type: Spontaneous
  Country: US (occurrence: None)
  Receive Date: 20130905
  Receipt Date: 20130905
  Transmission Date: 20140515
  Serious: Yes (Other)
  Sender: FDA-Public Use
  Company Number: SYM-2013-10285

PATIENT
  Age: 37 Year
  Sex: Male

DRUGS (6)
  1. ATIVAN [Suspect]
     Indication: SCHIZOPHRENIA
     Dosage: 1 MG, 2 IN 1 AS REQUIRED, ORAL
     Dates: start: 2013
  2. ATIVAN [Suspect]
     Dosage: 1 MG, 2 IN 1 AS REQUIRED, ORAL
     Dates: start: 2013
  3. ATIVAN [Suspect]
     Dosage: 1 MG, 2 IN 1 AS REQUIRED, ORAL
     Dates: start: 2013
  4. ATIVAN [Suspect]
     Dosage: 1 MG, 2 IN 1 AS REQUIRED, ORAL
     Dates: start: 2013
  5. ATIVAN [Suspect]
     Dosage: 1 MG, 2 IN 1 AS REQUIRED, ORAL
     Dates: start: 2013
  6. ATIVAN [Suspect]
     Dosage: 1 MG, 2 IN 1 AS REQUIRED, ORAL
     Dates: start: 2013

REACTIONS (5)
  - Hallucination [None]
  - Loss of consciousness [None]
  - Amnesia [None]
  - Abnormal behaviour [None]
  - Road traffic accident [None]
